FAERS Safety Report 19007678 (Version 1)
Quarter: 2021Q1

REPORT INFORMATION
  Report Type: Spontaneous
  Country: FR (occurrence: FR)
  Receive Date: 20210315
  Receipt Date: 20210315
  Transmission Date: 20210420
  Serious: Yes (Life-Threatening)
  Sender: FDA-Public Use
  Company Number: FR-BRISTOL-MYERS SQUIBB COMPANY-BMS-2021-021895

PATIENT
  Age: 89 Year
  Sex: Male

DRUGS (2)
  1. LEVOFLOXACINE [LEVOFLOXACIN] [Interacting]
     Active Substance: LEVOFLOXACIN
     Indication: LUNG DISORDER
     Dosage: 250 MILLIGRAM, 1 DAY
     Route: 042
     Dates: start: 20210219, end: 20210224
  2. COUMADINE [Suspect]
     Active Substance: WARFARIN SODIUM
     Indication: ATRIAL FIBRILLATION
     Dosage: 2 MILLIGRAM, 1 DAY
     Route: 048

REACTIONS (2)
  - International normalised ratio increased [Recovering/Resolving]
  - Labelled drug-drug interaction medication error [Unknown]

NARRATIVE: CASE EVENT DATE: 20210224
